FAERS Safety Report 9527688 (Version 1)
Quarter: 2013Q1

REPORT INFORMATION
  Report Type: Spontaneous
  Country: US (occurrence: None)
  Receive Date: 20130314
  Receipt Date: 20130314
  Transmission Date: 20140127
  Serious: No
  Sender: FDA-Public Use
  Company Number: 1212USA003053

PATIENT
  Age: 61 Year
  Sex: Male
  Weight: 86.2 kg

DRUGS (5)
  1. VICTRELIS (BOCEPREVIR) CAPSULE, 200MG [Suspect]
     Indication: HEPATITIS C
     Dosage: 4 DF, TID, FREQUENCY: 4 CAPSULES BY MOUTH 3 TIMES A DAY WITH LIGHT MEAL OR SNACK. ORAL
     Route: 048
  2. RIBAVIRIN (RIBAVIRIN) CAPSULE, 200MG [Suspect]
     Indication: HEPATITIS C
  3. PEGINTRON [Suspect]
     Indication: HEPATITIS C
  4. ZOLOFT (SERTRALINE HYDROCHLORIDE) TABLET, 25 MG [Concomitant]
  5. GLIMEPIRIDE (GLIMEPIRIDE) TABLET, 2 MG [Concomitant]

REACTIONS (1)
  - White blood cell count decreased [None]
